FAERS Safety Report 8073264-3 (Version None)
Quarter: 2012Q1

REPORT INFORMATION
  Report Type: 
  Country: None (occurrence: None)
  Receive Date: 20120126
  Receipt Date: 20120118
  Transmission Date: 20120608
  Serious: Yes (Other)
  Sender: FDA-Public Use
  Company Number: US-ASTRAZENECA-2012SE03838

PATIENT
  Age: 53 Year
  Sex: Female

DRUGS (1)
  1. NEXIUM [Suspect]
     Route: 048

REACTIONS (3)
  - ROAD TRAFFIC ACCIDENT [None]
  - INTERVERTEBRAL DISC DISPLACEMENT [None]
  - SCIATICA [None]
